FAERS Safety Report 20570614 (Version 1)
Quarter: 2022Q1

REPORT INFORMATION
  Report Type: Spontaneous
  Country: US (occurrence: US)
  Receive Date: 20220309
  Receipt Date: 20220309
  Transmission Date: 20220423
  Serious: No
  Sender: FDA-Public Use
  Company Number: US-AMGEN-USASP2022040491

PATIENT
  Age: 51 Year
  Sex: Female

DRUGS (1)
  1. OTEZLA [Suspect]
     Active Substance: APREMILAST
     Indication: Product used for unknown indication
     Dosage: 60 MILLIGRAM, QD
     Route: 048
     Dates: start: 202112

REACTIONS (4)
  - SARS-CoV-2 test positive [Recovered/Resolved]
  - Gastrooesophageal reflux disease [Unknown]
  - Insomnia [Unknown]
  - Intentional product misuse [Unknown]

NARRATIVE: CASE EVENT DATE: 20211203
